FAERS Safety Report 9728081 (Version 1)
Quarter: 2013Q4

REPORT INFORMATION
  Report Type: Spontaneous
  Country: US (occurrence: None)
  Receive Date: 20131203
  Receipt Date: 20131203
  Transmission Date: 20140711
  Serious: Yes (Other)
  Sender: FDA-Public Use
  Company Number: None

PATIENT
  Age: 83 Year
  Sex: Female
  Weight: 58.06 kg

DRUGS (13)
  1. LIALDA [Suspect]
     Indication: GASTROOESOPHAGEAL REFLUX DISEASE
     Route: 048
     Dates: start: 20130910, end: 20130912
  2. LIALDA [Suspect]
     Indication: DIARRHOEA
     Route: 048
     Dates: start: 20130910, end: 20130912
  3. AMLODIPINE [Suspect]
     Dosage: 5 MG ONCE DAILY AM
  4. TOPROL ER [Suspect]
     Dosage: 25 MG ONE TO FOUR TABLETS DAILY
  5. IRBESARTAN [Suspect]
  6. ASPIRIN [Concomitant]
  7. VITAMIN B-12 [Concomitant]
  8. VITAMIN B-12 SHOT [Concomitant]
  9. GLUCOSAMINE + CHONDROITIN [Concomitant]
  10. ACIDOPHILUS [Concomitant]
  11. CALCIUM 300 + D [Concomitant]
  12. ONE-A-DAY [Concomitant]
  13. SENIOR PRO BIOTIC [Concomitant]

REACTIONS (5)
  - Drug hypersensitivity [None]
  - Nausea [None]
  - Dizziness [None]
  - Body temperature increased [None]
  - Diarrhoea [None]
